FAERS Safety Report 6578386-1 (Version None)
Quarter: 2010Q1

REPORT INFORMATION
  Report Type: 
  Country: None (occurrence: None)
  Receive Date: 20100211
  Receipt Date: 20100127
  Transmission Date: 20100710
  Serious: Yes (Hospitalization)
  Sender: FDA-Public Use
  Company Number: GB-MEDIMMUNE-MEDI-0010477

PATIENT
  Sex: Male

DRUGS (2)
  1. SYNAGIS [Suspect]
     Dates: start: 20091101, end: 20091101
  2. SYNAGIS [Suspect]
     Dates: start: 20091217, end: 20100125

REACTIONS (2)
  - INAPPROPRIATE SCHEDULE OF DRUG ADMINISTRATION [None]
  - OVERDOSE [None]
